FAERS Safety Report 5346365-8 (Version None)
Quarter: 2007Q2

REPORT INFORMATION
  Report Type: 
  Country: None (occurrence: None)
  Receive Date: 20070605
  Receipt Date: 20070529
  Transmission Date: 20071010
  Serious: Yes (Hospitalization)
  Sender: FDA-Public Use
  Company Number: JP-BOEHRINGER INGELHEIM PHARMACEUTICALS, INC.-2006-BP-11633NB

PATIENT
  Sex: Male
  Weight: 60.4 kg

DRUGS (5)
  1. BI-SIFROL TABLETS [Suspect]
     Indication: PARKINSON'S DISEASE
     Route: 048
     Dates: start: 20060127, end: 20060411
  2. EC-DOPARL (LEVODOPA_BENSERAZIDE HYDROCHLORIDE) [Concomitant]
     Indication: PARKINSON'S DISEASE
     Route: 048
     Dates: start: 20041002
  3. ARTANE [Concomitant]
     Indication: PARKINSON'S DISEASE
     Route: 048
     Dates: start: 19971224
  4. SYMMETREL [Concomitant]
     Indication: PARKINSON'S DISEASE
     Route: 048
     Dates: start: 20051128
  5. ALMARL [Concomitant]
     Indication: PARKINSON'S DISEASE
     Route: 048
     Dates: start: 20050629

REACTIONS (4)
  - CONSTIPATION [None]
  - DIARRHOEA [None]
  - HALLUCINATION, VISUAL [None]
  - VOLVULUS [None]
